FAERS Safety Report 15640298 (Version 1)
Quarter: 2018Q4

REPORT INFORMATION
  Report Type: Spontaneous
  Country: US (occurrence: US)
  Receive Date: 20181120
  Receipt Date: 20181120
  Transmission Date: 20190205
  Serious: Yes (Other)
  Sender: FDA-Public Use
  Company Number: PHHY2018US155034

PATIENT
  Age: 18 Year
  Sex: Male

DRUGS (4)
  1. TACROLIMUS. [Suspect]
     Active Substance: TACROLIMUS
     Indication: IMMUNOSUPPRESSANT DRUG THERAPY
     Dosage: 3-4 NG/ML
     Route: 065
  2. TENOFOVIR [Concomitant]
     Active Substance: TENOFOVIR
     Indication: PRODUCT USED FOR UNKNOWN INDICATION
     Route: 065
  3. TACROLIMUS. [Suspect]
     Active Substance: TACROLIMUS
     Indication: LIVER TRANSPLANT
     Route: 065
  4. ENTECAVIR. [Concomitant]
     Active Substance: ENTECAVIR
     Indication: HEPATITIS B
     Route: 065

REACTIONS (16)
  - Splenomegaly [Unknown]
  - Thrombocytopenia [Unknown]
  - Fatigue [Unknown]
  - Anuria [Unknown]
  - Jaundice [Unknown]
  - Hyperbilirubinaemia [Not Recovered/Not Resolved]
  - Ocular icterus [Unknown]
  - Metabolic acidosis [Unknown]
  - Unresponsive to stimuli [Unknown]
  - Mycoplasma infection [Unknown]
  - Autoimmune haemolytic anaemia [Unknown]
  - Anaemia [Not Recovered/Not Resolved]
  - Hepatic enzyme increased [Not Recovered/Not Resolved]
  - Cholestasis [Unknown]
  - Renal impairment [Unknown]
  - Toxicity to various agents [Unknown]
